FAERS Safety Report 8569109-5 (Version None)
Quarter: 2012Q3

REPORT INFORMATION
  Report Type: 
  Country: None (occurrence: None)
  Receive Date: 20120803
  Receipt Date: 20120723
  Transmission Date: 20120928
  Serious: Yes (Hospitalization, Other)
  Sender: FDA-Public Use
  Company Number: NL-ROCHE-1091808

PATIENT
  Age: 69 Year
  Sex: Female
  Weight: 71.5 kg

DRUGS (2)
  1. VEMURAFENIB [Suspect]
     Indication: METASTATIC MALIGNANT MELANOMA
     Route: 048
     Dates: start: 20110912, end: 20120624
  2. VEMURAFENIB [Suspect]
     Route: 048
     Dates: start: 20120712

REACTIONS (3)
  - CARDIAC FAILURE [None]
  - RENAL FAILURE [None]
  - ATRIAL FIBRILLATION [None]
